FAERS Safety Report 7691886-6 (Version None)
Quarter: 2011Q3

REPORT INFORMATION
  Report Type: 
  Country: None (occurrence: None)
  Receive Date: 20110818
  Receipt Date: 20090105
  Transmission Date: 20111222
  Serious: Yes (Hospitalization, Other)
  Sender: FDA-Public Use
  Company Number: PHHY2009TW68687

PATIENT
  Sex: Male

DRUGS (2)
  1. GLEEVEC [Suspect]
     Indication: GASTROINTESTINAL STROMAL TUMOUR
     Dosage: 800 MG, DAILY
     Route: 048
     Dates: start: 20041001
  2. TASIGNA [Suspect]
     Dosage: 2 DF

REACTIONS (9)
  - GASTROINTESTINAL STROMAL TUMOUR [None]
  - ORBITAL OEDEMA [None]
  - DEPRESSION [None]
  - WHITE BLOOD CELL COUNT INCREASED [None]
  - POOR QUALITY SLEEP [None]
  - NEOPLASM MALIGNANT [None]
  - CHEST PAIN [None]
  - DISCOMFORT [None]
  - PAIN [None]
